FAERS Safety Report 4738613-X (Version None)
Quarter: 2005Q3

REPORT INFORMATION
  Report Type: 
  Country: None (occurrence: None)
  Receive Date: 20050801
  Receipt Date: 20050719
  Transmission Date: 20060218
  Serious: Yes (Hospitalization)
  Sender: FDA-Public Use
  Company Number: 2005BH000814

PATIENT
  Age: 1 Year
  Sex: Male
  Weight: 11.8 kg

DRUGS (2)
  1. ADVATE [Suspect]
     Dosage: 458 AS NEEDED
     Dates: start: 20050531, end: 20050531
  2. ADVATE [Suspect]
     Dosage: 458 AS NEEDED
     Dates: start: 20050604, end: 20050604

REACTIONS (5)
  - DEHYDRATION [None]
  - DIARRHOEA [None]
  - PYREXIA [None]
  - SOMNOLENCE [None]
  - VOMITING [None]
